FAERS Safety Report 7907852-9 (Version None)
Quarter: 2011Q4

REPORT INFORMATION
  Report Type: 
  Country: None (occurrence: None)
  Receive Date: 20111110
  Receipt Date: 20111107
  Transmission Date: 20120403
  Serious: Yes (Other)
  Sender: FDA-Public Use
  Company Number: BR-PFIZER INC-2011271370

PATIENT
  Age: 54 Year
  Sex: Female
  Weight: 87 kg

DRUGS (14)
  1. VARENICLINE TARTRATE [Suspect]
     Indication: SMOKING CESSATION THERAPY
     Dosage: 0.5 MG, 1X/DAY
     Route: 048
     Dates: start: 20111024, end: 20110101
  2. PENTOXIFYLLINE [Concomitant]
     Indication: VENOUS OCCLUSION
  3. PASSIFLORA EXTRACT [Concomitant]
     Indication: ANXIETY
  4. VARENICLINE TARTRATE [Suspect]
     Dosage: 1 MG, 2X/DAY
     Dates: start: 20110101
  5. FUROSEMIDE [Concomitant]
     Indication: HYPERTENSION
     Dosage: UNK
     Dates: start: 20100101
  6. AAS INFANTIL [Concomitant]
     Dosage: ONE TABLET, ONCE DAILY
  7. CILOSTAZOL [Concomitant]
     Indication: VENOUS OCCLUSION
  8. ASPIRIN [Concomitant]
     Indication: ARTERIAL OCCLUSIVE DISEASE
     Dosage: UNK
  9. OLMESARTAN MEDOXOMIL [Concomitant]
     Indication: HYPERTENSION
     Dosage: 20 MG, 1X/DAY
     Dates: start: 20100101
  10. OLMESARTAN MEDOXOMIL [Concomitant]
  11. PASSIFLORA EXTRACT [Concomitant]
     Indication: RELAXATION THERAPY
     Dosage: UNK
  12. CILOSTAZOL [Concomitant]
     Indication: CARDIOVASCULAR DISORDER
     Dosage: 100 MG, 1X/DAY
     Dates: start: 20100101
  13. PENTOXIFYLLINE [Concomitant]
     Indication: CARDIOVASCULAR DISORDER
     Dosage: 400 MG, 1X/DAY
     Dates: start: 20100101
  14. LEXOTAN [Concomitant]
     Indication: SLEEP DISORDER
     Dosage: 6 MG, 1X/DAY, AT NIGHT

REACTIONS (6)
  - HEADACHE [None]
  - CRYING [None]
  - DEPRESSED MOOD [None]
  - TREMOR [None]
  - SALIVARY HYPERSECRETION [None]
  - HALLUCINATION [None]
